FAERS Safety Report 7313398-1 (Version None)
Quarter: 2011Q1

REPORT INFORMATION
  Report Type: 
  Country: None (occurrence: None)
  Receive Date: 20110215
  Receipt Date: 20110215
  Transmission Date: 20110831
  Serious: Yes (Life-Threatening, Hospitalization)
  Sender: FDA-Public Use
  Company Number: None

PATIENT
  Sex: Male
  Weight: 85.2762 kg

DRUGS (2)
  1. BUSPAR [Suspect]
     Indication: ANXIETY
     Dosage: ONE TO THREE TABLETS BY MOUTH TWICE A DAY PO
     Route: 048
     Dates: start: 20110201, end: 20110204
  2. XANAX [Suspect]
     Indication: ANXIETY
     Dosage: ONE TO TWO TABLETS BY MOUTH THREE TIMES A DAY PO
     Route: 048
     Dates: start: 20110201, end: 20110204

REACTIONS (16)
  - TINNITUS [None]
  - SUICIDE ATTEMPT [None]
  - RESTLESSNESS [None]
  - DRUG DISPENSING ERROR [None]
  - SELF-MEDICATION [None]
  - ANXIETY [None]
  - DEPRESSION [None]
  - INSOMNIA [None]
  - HALLUCINATION [None]
  - INCORRECT DOSE ADMINISTERED [None]
  - LOSS OF CONSCIOUSNESS [None]
  - SPEECH DISORDER [None]
  - CONDITION AGGRAVATED [None]
  - MOTOR DYSFUNCTION [None]
  - SEROTONIN SYNDROME [None]
  - DRUG PRESCRIBING ERROR [None]
